FAERS Safety Report 13612808 (Version 3)
Quarter: 2017Q2

REPORT INFORMATION
  Report Type: Spontaneous
  Country: CH (occurrence: US)
  Receive Date: 20170605
  Receipt Date: 20170627
  Transmission Date: 20170830
  Serious: Yes (Life-Threatening, Hospitalization)
  Sender: FDA-Public Use
  Company Number: CH-LPDUSPRD-20170712

PATIENT
  Age: 82 Year
  Sex: Female
  Weight: 49.3 kg

DRUGS (27)
  1. ASPIRIN 81 [Concomitant]
     Active Substance: ASPIRIN
     Dosage: UNKNOWN
     Route: 065
  2. EPOETIN ALFA [Concomitant]
     Active Substance: ERYTHROPOIETIN
     Dosage: UNKNOWN
     Route: 065
  3. ATORVASTATIN [Concomitant]
     Active Substance: ATORVASTATIN
     Dosage: UNKNOWN
  4. MIRTAZAPINE. [Concomitant]
     Active Substance: MIRTAZAPINE
     Dosage: UNKNOWN
     Route: 065
  5. PEPCID [Concomitant]
     Active Substance: FAMOTIDINE
     Dosage: UNKNOWN
     Route: 065
  6. NORVASC [Concomitant]
     Active Substance: AMLODIPINE BESYLATE
     Dosage: UNKNOWN
     Route: 065
  7. TRAMADOL. [Concomitant]
     Active Substance: TRAMADOL
     Dosage: UNKNOWN
     Route: 065
  8. LEVOTHYROXINE. [Concomitant]
     Active Substance: LEVOTHYROXINE
     Dosage: UNKNOWN
     Route: 065
  9. METOPROLOL. [Concomitant]
     Active Substance: METOPROLOL
     Dosage: UNKNOWN
     Route: 065
  10. ALLOPURINOL. [Concomitant]
     Active Substance: ALLOPURINOL
  11. PARACETAMOL [Concomitant]
     Active Substance: ACETAMINOPHEN
     Dosage: UNKNOWN
  12. CARVEDILOL. [Concomitant]
     Active Substance: CARVEDILOL
     Dosage: UNKNOWN
     Route: 065
  13. NEUPOGEN [Concomitant]
     Active Substance: FILGRASTIM
     Dosage: UNKNOWN
     Route: 065
  14. VENOFER [Suspect]
     Active Substance: IRON SUCROSE
     Dosage: 50 MG
     Route: 040
     Dates: start: 20170411, end: 20170418
  15. FISH OIL CAPSULE [Concomitant]
     Dosage: UNKNOWN
     Route: 048
  16. POTASSIUM CHLORIDE. [Concomitant]
     Active Substance: POTASSIUM CHLORIDE
     Dosage: UNKNOWN
     Route: 065
  17. ALLOPURINOL. [Concomitant]
     Active Substance: ALLOPURINOL
     Dosage: UNKNOWN
     Route: 065
  18. MULTIVITAMIN [Concomitant]
     Active Substance: VITAMINS
     Route: 048
  19. MIRCERA [Suspect]
     Active Substance: METHOXY POLYETHYLENE GLYCOL-EPOETIN BETA
     Dosage: 75 MCG
     Route: 040
     Dates: start: 20170411, end: 20170411
  20. FAMOTIDINE. [Concomitant]
     Active Substance: FAMOTIDINE
     Dosage: UNKNOWN
     Route: 065
  21. ALBUTEROL. [Concomitant]
     Active Substance: ALBUTEROL
     Dosage: UNKNOWN
     Route: 065
  22. TESSALON [Concomitant]
     Active Substance: BENZONATATE
     Dosage: UNKNOWN
     Route: 065
  23. VITAMIN B12 [Concomitant]
     Active Substance: CYANOCOBALAMIN
     Dosage: UNKNOWN
     Route: 065
  24. LUTEIN [Concomitant]
     Active Substance: LUTEIN
     Dosage: UNKNOWN
     Route: 065
  25. HYDRALAZINE [Concomitant]
     Active Substance: HYDRALAZINE HYDROCHLORIDE
     Dosage: UNKNOWN
     Route: 065
  26. VANCOMYCIN [Concomitant]
     Active Substance: VANCOMYCIN
     Dosage: UNKNOWN
     Route: 065
  27. IRON SULFATE [Concomitant]
     Active Substance: FERROUS SULFATE ANHYDROUS
     Dosage: UNKNOWN
     Route: 065

REACTIONS (27)
  - Heart rate decreased [Unknown]
  - Blood pressure decreased [Unknown]
  - Bacteriuria [Unknown]
  - Tachycardia [Unknown]
  - Unresponsive to stimuli [Unknown]
  - Acute respiratory failure [Unknown]
  - Supraventricular extrasystoles [Unknown]
  - Pain [Unknown]
  - Hypokalaemia [Unknown]
  - Hypomagnesaemia [Unknown]
  - Urinary tract infection [Unknown]
  - Pyuria [Unknown]
  - Transaminases increased [Unknown]
  - Atrial fibrillation [Unknown]
  - Diarrhoea [Unknown]
  - Sedation [Unknown]
  - Pulse absent [Unknown]
  - Cardio-respiratory arrest [Unknown]
  - Metabolic acidosis [Unknown]
  - Bacterial infection [Unknown]
  - Wound [Unknown]
  - Anxiety [Unknown]
  - Vomiting [Unknown]
  - Hypersensitivity [Unknown]
  - Ventricular fibrillation [Unknown]
  - Discomfort [Unknown]
  - Clostridium difficile infection [Unknown]

NARRATIVE: CASE EVENT DATE: 20170411
